FAERS Safety Report 8543157-3 (Version None)
Quarter: 2012Q3

REPORT INFORMATION
  Report Type: 
  Country: None (occurrence: None)
  Receive Date: 20120727
  Receipt Date: 20120717
  Transmission Date: 20120928
  Serious: Yes (Hospitalization, Other)
  Sender: FDA-Public Use
  Company Number: JP-ELI_LILLY_AND_COMPANY-JP201203006275

PATIENT
  Age: 65 Year
  Sex: Female
  Weight: 48 kg

DRUGS (8)
  1. GLYCYRON [Concomitant]
     Dosage: 2 DF, BID
     Route: 048
  2. FORTEO [Suspect]
     Indication: OSTEOPOROSIS
     Dosage: 20 UG, QD
     Route: 058
     Dates: start: 20120319, end: 20120319
  3. MAGMITT [Concomitant]
     Dosage: 330 MG, TID
     Route: 048
  4. PREDNISOLONE [Concomitant]
     Dosage: 2 MG, BID
     Route: 048
  5. FOLIC ACID [Concomitant]
     Dosage: 5 MG, WEEKLY (1/W)
     Route: 048
  6. INDOMETHACIN [Concomitant]
     Dosage: 25 MG, BID
     Route: 048
  7. METHOTREXATE [Concomitant]
     Dosage: 2 MG, 2/W
     Route: 048
  8. OMEPRAZOLE [Concomitant]
     Dosage: 10 MG, BID
     Route: 048

REACTIONS (1)
  - ANAPHYLACTIC SHOCK [None]
